FAERS Safety Report 22111127 (Version 1)
Quarter: 2023Q1

REPORT INFORMATION
  Report Type: Spontaneous
  Country: US (occurrence: US)
  Receive Date: 20230317
  Receipt Date: 20230317
  Transmission Date: 20230418
  Serious: No
  Sender: FDA-Public Use
  Company Number: US-MARINUS PHARMACEUTICALS, INC.-MAR2023000016

PATIENT
  Age: 18 Year
  Sex: Female
  Weight: 43.084 kg

DRUGS (5)
  1. ZTALMY [Suspect]
     Active Substance: GANAXOLONE
     Indication: CDKL5 deficiency disorder
     Dosage: UNK DOSAGE FORM
     Route: 048
     Dates: start: 202301
  2. ZTALMY [Suspect]
     Active Substance: GANAXOLONE
     Dosage: 1 MILLILITER, TID
     Route: 048
     Dates: start: 20230127, end: 20230129
  3. ZTALMY [Suspect]
     Active Substance: GANAXOLONE
     Dosage: 2 MILLILITER, TID (PRODUCT ID: 81583-100-05)
     Route: 048
     Dates: start: 20230129
  4. GABA [GAMMA-AMINOBUTYRIC ACID] [Concomitant]
     Indication: Product used for unknown indication
     Dosage: UNK DOSAGE FORM
     Route: 065
     Dates: start: 202301
  5. VIMPAT [Concomitant]
     Active Substance: LACOSAMIDE
     Indication: Product used for unknown indication
     Dosage: UNK DOSAGE FORM
     Route: 065

REACTIONS (6)
  - Nervousness [Unknown]
  - Urinary tract infection [Unknown]
  - Feeling abnormal [Unknown]
  - Seizure [Unknown]
  - Dyskinesia [Unknown]
  - Somnolence [Unknown]

NARRATIVE: CASE EVENT DATE: 20230101
